FAERS Safety Report 6483977-2 (Version None)
Quarter: 2009Q4

REPORT INFORMATION
  Report Type: 
  Country: None (occurrence: None)
  Receive Date: 20091209
  Receipt Date: 20090518
  Transmission Date: 20100525
  Serious: No
  Sender: FDA-Public Use
  Company Number: US-AMGEN-KDL347580

PATIENT
  Sex: Female

DRUGS (3)
  1. ENBREL [Suspect]
     Indication: SPONDYLOARTHROPATHY
     Route: 058
  2. ENBREL [Suspect]
     Indication: RHEUMATOID ARTHRITIS
  3. AZATHIOPRINE [Concomitant]

REACTIONS (3)
  - INJECTION SITE ANAESTHESIA [None]
  - INJECTION SITE PARAESTHESIA [None]
  - INJECTION SITE REACTION [None]
